FAERS Safety Report 7653941-6 (Version None)
Quarter: 2011Q3

REPORT INFORMATION
  Report Type: 
  Country: None (occurrence: None)
  Receive Date: 20110803
  Receipt Date: 20110722
  Transmission Date: 20111222
  Serious: Yes (Hospitalization)
  Sender: FDA-Public Use
  Company Number: US-JNJFOC-20110710018

PATIENT
  Sex: Male
  Weight: 55.4 kg

DRUGS (6)
  1. REMICADE [Suspect]
     Indication: PROPHYLAXIS
     Route: 042
     Dates: start: 20090317
  2. BUDESONIDE [Concomitant]
  3. SEPTRA [Concomitant]
     Indication: ANTIBIOTIC THERAPY
  4. REMICADE [Suspect]
     Route: 042
     Dates: start: 20100119
  5. METHOTREXATE [Concomitant]
  6. TACROLIMUS [Concomitant]

REACTIONS (4)
  - DEHYDRATION [None]
  - DIARRHOEA [None]
  - ABDOMINAL PAIN [None]
  - VOMITING [None]
